FAERS Safety Report 11411542 (Version 3)
Quarter: 2015Q3

REPORT INFORMATION
  Report Type: Spontaneous
  Country: US (occurrence: US)
  Receive Date: 20150821
  Receipt Date: 20150903
  Transmission Date: 20151125
  Serious: No
  Sender: FDA-Public Use
  Company Number: US-ELI_LILLY_AND_COMPANY-US201003000178

PATIENT
  Sex: Female

DRUGS (7)
  1. HUMALOG [Suspect]
     Active Substance: INSULIN LISPRO
     Indication: DIABETES MELLITUS
  2. LEVEMIR [Concomitant]
     Active Substance: INSULIN DETEMIR
  3. NOVOLIN [Concomitant]
     Active Substance: INSULIN HUMAN
  4. LANTUS [Concomitant]
     Active Substance: INSULIN GLARGINE
  5. HUMULIN 70/30 [Suspect]
     Active Substance: INSULIN HUMAN
     Indication: DIABETES MELLITUS
     Dosage: 25 U, BID
  6. NOVOLIN [Concomitant]
     Active Substance: INSULIN HUMAN
  7. HUMALOG MIX75/25 [Suspect]
     Active Substance: INSULIN LISPRO
     Indication: DIABETES MELLITUS

REACTIONS (9)
  - Blood glucose increased [Unknown]
  - Drug ineffective [Unknown]
  - Drug ineffective [Unknown]
  - Weight decreased [Unknown]
  - Fungal skin infection [Unknown]
  - Gastric bypass [Unknown]
  - Vulvovaginal mycotic infection [Unknown]
  - Wound secretion [Unknown]
  - Skin odour abnormal [Unknown]

NARRATIVE: CASE EVENT DATE: 201011
